FAERS Safety Report 4278977-7 (Version None)
Quarter: 2004Q1

REPORT INFORMATION
  Report Type: 
  Country: None (occurrence: None)
  Receive Date: 20040126
  Receipt Date: 20031120
  Transmission Date: 20041129
  Serious: Yes (Hospitalization)
  Sender: FDA-Public Use
  Company Number: WAES 0311USA02799

PATIENT
  Age: 81 Year
  Sex: Female
  Weight: 47 kg

DRUGS (6)
  1. FOSAMAX [Suspect]
     Indication: OSTEOPOROSIS
     Route: 048
     Dates: start: 20011004, end: 20031117
  2. DIMETHICONE [Concomitant]
  3. ETHYL EICOSAPENTAENOATE [Concomitant]
  4. ETIZOLAM [Concomitant]
  5. COZAAR [Concomitant]
     Indication: HYPERTENSION
     Route: 048
  6. TEPRENONE [Concomitant]

REACTIONS (4)
  - FEELING HOT [None]
  - OESOPHAGEAL ULCER [None]
  - STOMATITIS [None]
  - VULVAL ULCERATION [None]
